FAERS Safety Report 10228798 (Version 1)
Quarter: 2014Q2

REPORT INFORMATION
  Report Type: Spontaneous
  Country: US (occurrence: US)
  Receive Date: 20140610
  Receipt Date: 20140610
  Transmission Date: 20141212
  Serious: Yes (Other)
  Sender: FDA-Public Use
  Company Number: US-ENDO PHARMACEUTICALS INC.-ENDC20140018

PATIENT
  Age: 64 Year
  Sex: Male
  Weight: 115.77 kg

DRUGS (5)
  1. ENDOCET 10MG/325MG [Suspect]
     Indication: PRODUCT USED FOR UNKNOWN INDICATION
     Dosage: 40/1300 MG
     Route: 048
     Dates: start: 2004
  2. LYRICA [Suspect]
     Indication: CEREBROVASCULAR ACCIDENT
     Route: 048
     Dates: start: 20140508
  3. ANTIHYPERTENSIVES [Concomitant]
     Indication: HYPERTENSION
     Dosage: UNKNOWN
     Route: 065
  4. AMBIEN [Concomitant]
     Indication: PRODUCT USED FOR UNKNOWN INDICATION
     Dosage: UNKNOWN
     Route: 065
  5. XANAX [Concomitant]
     Indication: PRODUCT USED FOR UNKNOWN INDICATION
     Dosage: UNKNOWN
     Route: 065

REACTIONS (12)
  - Cerebrovascular accident [Unknown]
  - Potentiating drug interaction [Unknown]
  - Muscle spasms [Unknown]
  - Condition aggravated [Unknown]
  - Decreased appetite [Unknown]
  - Pain in extremity [Unknown]
  - Sensory loss [Unknown]
  - Tension [Unknown]
  - Muscle tightness [Unknown]
  - Hypoaesthesia oral [Unknown]
  - Hypoaesthesia [Unknown]
  - Euphoric mood [Unknown]
